FAERS Safety Report 21090091 (Version 1)
Quarter: 2022Q3

REPORT INFORMATION
  Report Type: Report from Study
  Country: US (occurrence: US)
  Receive Date: 20220715
  Receipt Date: 20220715
  Transmission Date: 20221026
  Serious: Yes (Other)
  Sender: FDA-Public Use
  Company Number: US-MYLANLABS-2022M1077830

PATIENT
  Age: 25 Year
  Sex: Female

DRUGS (2)
  1. AMNESTEEM [Suspect]
     Active Substance: ISOTRETINOIN
     Indication: Product used for unknown indication
     Dosage: 40 MILLIGRAM, QD (ONCE A DAY)
     Route: 065
     Dates: start: 20130101, end: 20130901
  2. CLARAVIS [Concomitant]
     Active Substance: ISOTRETINOIN
     Indication: Bipolar disorder
     Dosage: 30 MILLIGRAM, BID (TWICE A DAY)
     Route: 065

REACTIONS (1)
  - Bipolar disorder [Unknown]

NARRATIVE: CASE EVENT DATE: 20180601
